FAERS Safety Report 7122894-1 (Version None)
Quarter: 2010Q4

REPORT INFORMATION
  Report Type: 
  Country: None (occurrence: None)
  Receive Date: 20101124
  Receipt Date: 20101115
  Transmission Date: 20110411
  Serious: Yes (Death, Hospitalization)
  Sender: FDA-Public Use
  Company Number: US-GILEAD-2010-0032547

PATIENT
  Sex: Male

DRUGS (19)
  1. LETAIRIS [Suspect]
     Indication: PULMONARY ARTERIAL HYPERTENSION
     Route: 048
     Dates: start: 20080505
  2. LETAIRIS [Suspect]
     Route: 048
     Dates: start: 20070925, end: 20080504
  3. REMODULIN SQ [Concomitant]
  4. REVATIO [Concomitant]
  5. COUMADIN [Concomitant]
  6. OXYGEN [Concomitant]
  7. LASIX [Concomitant]
  8. ALDACTONE [Concomitant]
  9. CARDIZEM CD [Concomitant]
  10. DIGOXIN [Concomitant]
  11. METOLAZONE [Concomitant]
  12. LORTAB [Concomitant]
  13. SPIRIVA [Concomitant]
  14. GLIPIZIDE [Concomitant]
  15. NEXIUM [Concomitant]
  16. ALLOPURINOL [Concomitant]
  17. AMBIEN [Concomitant]
  18. MORPHINE [Concomitant]
  19. POTASSIUM CHLORIDE [Concomitant]

REACTIONS (3)
  - DEATH [None]
  - FLUID OVERLOAD [None]
  - TRANSAMINASES INCREASED [None]
